FAERS Safety Report 5492291-3 (Version None)
Quarter: 2007Q4

REPORT INFORMATION
  Report Type: 
  Country: None (occurrence: None)
  Receive Date: 20071015
  Receipt Date: 20070711
  Transmission Date: 20080405
  Serious: No
  Sender: FDA-Public Use
  Company Number: 2007SP002516

PATIENT
  Age: 83 Year
  Sex: Female
  Weight: 76.2043 kg

DRUGS (5)
  1. LUNESTA [Suspect]
     Indication: INSOMNIA
     Dosage: 2 MG;1X;ORAL
     Route: 048
     Dates: start: 20070710, end: 20070710
  2. ZOLOFT [Concomitant]
  3. XANAX [Concomitant]
  4. ACIPHEX [Concomitant]
  5. ZANTAC [Concomitant]

REACTIONS (3)
  - FEELING HOT [None]
  - INSOMNIA [None]
  - NAUSEA [None]
